FAERS Safety Report 8590668 (Version 3)
Quarter: 2015Q1

REPORT INFORMATION
  Report Type: Spontaneous
  Country: JP (occurrence: JP)
  Receive Date: 20120601
  Receipt Date: 20150123
  Transmission Date: 20150721
  Serious: Yes (Hospitalization, Other)
  Sender: FDA-Public Use
  Company Number: PHHY2008JP17147

PATIENT
  Age: 40 Year
  Sex: Male
  Weight: 78.6 kg

DRUGS (1)
  1. GLIVEC [Suspect]
     Active Substance: IMATINIB MESYLATE
     Indication: GASTROINTESTINAL STROMAL TUMOUR
     Dosage: 400 MG, QD
     Route: 048
     Dates: start: 20080714, end: 20080805

REACTIONS (31)
  - Stevens-Johnson syndrome [Recovering/Resolving]
  - Genital lesion [Unknown]
  - Alanine aminotransferase increased [Unknown]
  - Epidermal necrosis [Unknown]
  - Hepatic function abnormal [Recovered/Resolved]
  - Blood bilirubin increased [Unknown]
  - C-reactive protein increased [Unknown]
  - Erythema multiforme [Recovered/Resolved]
  - Ulcer [Unknown]
  - Liver disorder [Recovered/Resolved]
  - Leukopenia [Recovered/Resolved]
  - Haematocrit decreased [Recovered/Resolved]
  - Erythema [Recovered/Resolved]
  - Drug intolerance [Unknown]
  - Monocyte count increased [Recovered/Resolved]
  - Malaise [Unknown]
  - Anorectal disorder [Unknown]
  - Aspartate aminotransferase increased [Unknown]
  - Melaena [Unknown]
  - Leucine aminopeptidase increased [Unknown]
  - Urinary retention [Unknown]
  - Conjunctival hyperaemia [Unknown]
  - Oral disorder [Unknown]
  - Lip erosion [Recovered/Resolved]
  - Blood lactate dehydrogenase increased [Unknown]
  - Dyschezia [Unknown]
  - Platelet count decreased [Recovered/Resolved]
  - Pyrexia [Unknown]
  - Oral mucosal eruption [Unknown]
  - Oropharyngeal pain [Unknown]
  - Blister [Unknown]

NARRATIVE: CASE EVENT DATE: 20080802
